FAERS Safety Report 16184128 (Version 1)
Quarter: 2019Q2

REPORT INFORMATION
  Report Type: Spontaneous
  Country: US (occurrence: US)
  Receive Date: 20190410
  Receipt Date: 20190410
  Transmission Date: 20190711
  Serious: No
  Sender: FDA-Public Use
  Company Number: None

PATIENT

DRUGS (2)
  1. LIPITOR [Suspect]
     Active Substance: ATORVASTATIN CALCIUM
  2. ZETIA [Suspect]
     Active Substance: EZETIMIBE

REACTIONS (3)
  - Restless legs syndrome [None]
  - Arthralgia [None]
  - Nausea [None]
